FAERS Safety Report 6110507-7 (Version None)
Quarter: 2009Q1

REPORT INFORMATION
  Report Type: 
  Country: None (occurrence: None)
  Receive Date: 20090310
  Receipt Date: 20090305
  Transmission Date: 20090719
  Serious: Yes (Other)
  Sender: FDA-Public Use
  Company Number: US-ROXANE LABORATORIES, INC.-2009-RO-00210RO

PATIENT
  Age: 51 Year
  Sex: Male
  Weight: 103 kg

DRUGS (5)
  1. NAPROXEN [Suspect]
     Indication: BACK PAIN
     Dosage: 1100MG
  2. PREDNISONE [Suspect]
     Indication: DEAFNESS NEUROSENSORY
     Dosage: 60MG
  3. PREDNISONE [Suspect]
  4. PEGYLATED INTERFERON ALPHA 2B [Suspect]
     Indication: HEPATITIS C VIRUS TEST
     Route: 058
  5. RIBAVIRIN [Suspect]
     Indication: HEPATITIS C VIRUS TEST
     Dosage: 800MG
     Route: 048

REACTIONS (3)
  - DEAFNESS NEUROSENSORY [None]
  - HEPATIC STEATOSIS [None]
  - HEPATITIS C VIRUS TEST [None]
